FAERS Safety Report 8211347-5 (Version None)
Quarter: 2012Q1

REPORT INFORMATION
  Report Type: 
  Country: None (occurrence: None)
  Receive Date: 20120315
  Receipt Date: 20120315
  Transmission Date: 20120608
  Serious: Yes (Other)
  Sender: FDA-Public Use
  Company Number: None

PATIENT
  Age: 43 Year
  Sex: Male
  Weight: 73.481 kg

DRUGS (1)
  1. CETIRIZINE [Suspect]
     Indication: RHINITIS ALLERGIC
     Dosage: 2.5MG
     Route: 048
     Dates: start: 20100901, end: 20110314

REACTIONS (2)
  - PRURITUS [None]
  - DRUG WITHDRAWAL SYNDROME [None]
